FAERS Safety Report 7126044-7 (Version None)
Quarter: 2010Q4

REPORT INFORMATION
  Report Type: 
  Country: None (occurrence: None)
  Receive Date: 20101129
  Receipt Date: 20101115
  Transmission Date: 20110411
  Serious: Yes (Other)
  Sender: FDA-Public Use
  Company Number: ES-ACTELION-A-CH2009-28361

PATIENT
  Sex: Female

DRUGS (3)
  1. TRACLEER [Suspect]
     Indication: RAYNAUD'S PHENOMENON
     Dosage: 125 MG, BID
     Route: 048
     Dates: start: 20090716, end: 20091019
  2. TRACLEER [Suspect]
     Dosage: 62.5 MG, BID
     Route: 048
     Dates: start: 20090429, end: 20090715
  3. TRACLEER [Suspect]
     Dosage: 62.5 MG, BID
     Route: 048
     Dates: start: 20101025

REACTIONS (2)
  - NORMAL NEWBORN [None]
  - PREGNANCY [None]
